FAERS Safety Report 9508673 (Version 1)
Quarter: 2013Q3

REPORT INFORMATION
  Report Type: Report from Study
  Country: US (occurrence: US)
  Receive Date: 20130909
  Receipt Date: 20130909
  Transmission Date: 20140515
  Serious: Yes (Hospitalization)
  Sender: FDA-Public Use
  Company Number: US-GLAXOSMITHKLINE-A1040485A

PATIENT
  Age: 74 Year
  Sex: Female
  Weight: 68.6 kg

DRUGS (9)
  1. SALBUTAMOL [Suspect]
     Indication: CHRONIC OBSTRUCTIVE PULMONARY DISEASE
     Dosage: 90MCG AS REQUIRED
     Route: 055
     Dates: start: 20120117
  2. HYDROCHLOROTHIAZIDE [Suspect]
     Indication: BLOOD PRESSURE INCREASED
     Dosage: 25MG PER DAY
     Route: 048
     Dates: start: 20121011, end: 20121012
  3. INVESTIGATIONAL STUDY DRUG [Suspect]
     Indication: CHRONIC OBSTRUCTIVE PULMONARY DISEASE
     Route: 055
     Dates: start: 20120629
  4. PRIMIDONE [Concomitant]
     Indication: ESSENTIAL TREMOR
     Dosage: 50MG PER DAY
     Route: 048
     Dates: start: 1998
  5. SERTRALINE [Concomitant]
     Indication: ANXIETY
     Dosage: 50MG PER DAY
     Dates: start: 2005
  6. METOPROLOL [Concomitant]
     Indication: HEART RATE IRREGULAR
     Dosage: 50MG TWICE PER DAY
     Dates: start: 1995
  7. MELOXICAM [Concomitant]
     Indication: OSTEOARTHRITIS
     Dosage: 7.5MG PER DAY
     Dates: start: 201001
  8. EVISTA [Concomitant]
     Indication: OSTEOPENIA
     Dosage: 60MG PER DAY
     Dates: start: 200609
  9. PULMICORT [Concomitant]
     Indication: CHRONIC OBSTRUCTIVE PULMONARY DISEASE
     Dosage: 360MCG TWICE PER DAY
     Dates: start: 20120102

REACTIONS (3)
  - Syncope [Recovered/Resolved]
  - Hypotension [Recovered/Resolved]
  - Atrial fibrillation [Recovered/Resolved]
